FAERS Safety Report 8520779-7 (Version None)
Quarter: 2012Q3

REPORT INFORMATION
  Report Type: 
  Country: None (occurrence: None)
  Receive Date: 20120719
  Receipt Date: 20120711
  Transmission Date: 20120928
  Serious: Yes (Life-Threatening)
  Sender: FDA-Public Use
  Company Number: DE-SANOFI-AVENTIS-2012SA049924

PATIENT
  Age: 70 Year
  Sex: Female
  Weight: 81.1 kg

DRUGS (4)
  1. PIPOBROMAN [Suspect]
     Dosage: 1X25 MG
     Route: 048
     Dates: start: 20110901, end: 20111101
  2. LEFLUNOMIDE [Suspect]
     Indication: RHEUMATOID ARTHRITIS
     Route: 048
     Dates: start: 20110601
  3. PIPOBROMAN [Suspect]
     Indication: THROMBOCYTOSIS
     Dosage: 2X25 MG
     Route: 048
     Dates: start: 20110501, end: 20110901
  4. PIPOBROMAN [Suspect]
     Dosage: 25 MG/ ALLE 3 D
     Route: 048
     Dates: start: 20111101

REACTIONS (3)
  - AGRANULOCYTOSIS [None]
  - BONE MARROW FAILURE [None]
  - PANCYTOPENIA [None]
